FAERS Safety Report 15851348 (Version 3)
Quarter: 2019Q2

REPORT INFORMATION
  Report Type: Spontaneous
  Country: US (occurrence: US)
  Receive Date: 20190122
  Receipt Date: 20190621
  Transmission Date: 20190711
  Serious: Yes (Death, Other)
  Sender: FDA-Public Use
  Company Number: US-ASTRAZENECA-2019SE09065

PATIENT
  Sex: Male
  Weight: 54.4 kg

DRUGS (36)
  1. SUCRALFATE. [Concomitant]
     Active Substance: SUCRALFATE
  2. ENOXAPARIN [Concomitant]
     Active Substance: ENOXAPARIN
  3. AMLODIPINE [Concomitant]
     Active Substance: AMLODIPINE BESYLATE
  4. NEXIUM [Suspect]
     Active Substance: ESOMEPRAZOLE MAGNESIUM
     Indication: GASTROOESOPHAGEAL REFLUX DISEASE
     Route: 048
     Dates: start: 20110407, end: 20150218
  5. PANTOPRAZOLE [Suspect]
     Active Substance: PANTOPRAZOLE
     Indication: NEOPLASM MALIGNANT
     Route: 065
     Dates: start: 20170904, end: 20171204
  6. VALSARTAN/HCT [Concomitant]
     Active Substance: HYDROCHLOROTHIAZIDE\VALSARTAN
  7. CARVEDILOL. [Concomitant]
     Active Substance: CARVEDILOL
  8. ASPIRIN. [Concomitant]
     Active Substance: ASPIRIN
  9. ROSUVASTATIN. [Concomitant]
     Active Substance: ROSUVASTATIN
  10. SUCRALFATE. [Concomitant]
     Active Substance: SUCRALFATE
  11. ZOLPIDEM [Concomitant]
     Active Substance: ZOLPIDEM\ZOLPIDEM TARTRATE
  12. NEXIUM [Suspect]
     Active Substance: ESOMEPRAZOLE MAGNESIUM
     Indication: GASTROOESOPHAGEAL REFLUX DISEASE
     Route: 048
     Dates: start: 20110407, end: 20151224
  13. NEXIUM [Suspect]
     Active Substance: ESOMEPRAZOLE MAGNESIUM
     Indication: GASTROOESOPHAGEAL REFLUX DISEASE
     Route: 048
     Dates: start: 20110407, end: 20111220
  14. NEXIUM [Suspect]
     Active Substance: ESOMEPRAZOLE MAGNESIUM
     Indication: GASTROOESOPHAGEAL REFLUX DISEASE
     Route: 048
     Dates: start: 20090403, end: 20100522
  15. PRILOSEC OTC [Suspect]
     Active Substance: OMEPRAZOLE MAGNESIUM
     Route: 065
  16. EFFIENT [Concomitant]
     Active Substance: PRASUGREL HYDROCHLORIDE
  17. DIOVAN [Concomitant]
     Active Substance: VALSARTAN
  18. NEXIUM [Suspect]
     Active Substance: ESOMEPRAZOLE MAGNESIUM
     Indication: GASTROOESOPHAGEAL REFLUX DISEASE
     Route: 048
     Dates: start: 20151127, end: 20151226
  19. ASPIRIN. [Concomitant]
     Active Substance: ASPIRIN
  20. RANEXA [Concomitant]
     Active Substance: RANOLAZINE
  21. CEPHALEXIN. [Concomitant]
     Active Substance: CEPHALEXIN
  22. CELEBREX [Concomitant]
     Active Substance: CELECOXIB
  23. PRAVACHOL [Concomitant]
     Active Substance: PRAVASTATIN SODIUM
  24. RANOLAZINE. [Concomitant]
     Active Substance: RANOLAZINE
  25. ROSUVASTATIN. [Concomitant]
     Active Substance: ROSUVASTATIN
  26. PREVACID 24 HR [Suspect]
     Active Substance: LANSOPRAZOLE
     Route: 065
  27. CRESTOR [Concomitant]
     Active Substance: ROSUVASTATIN CALCIUM
  28. MELOXICAM. [Concomitant]
     Active Substance: MELOXICAM
  29. PRAVASTATIN. [Concomitant]
     Active Substance: PRAVASTATIN
  30. ECONAZOLE. [Concomitant]
     Active Substance: ECONAZOLE NITRATE
  31. POTASSIUM CHLORIDE. [Concomitant]
     Active Substance: POTASSIUM CHLORIDE
  32. ZOLPIDEM [Concomitant]
     Active Substance: ZOLPIDEM\ZOLPIDEM TARTRATE
  33. CIPROFLOXACIN. [Concomitant]
     Active Substance: CIPROFLOXACIN
  34. VALSARTAN. [Concomitant]
     Active Substance: VALSARTAN
  35. NEXIUM [Suspect]
     Active Substance: ESOMEPRAZOLE MAGNESIUM
     Indication: GASTROOESOPHAGEAL REFLUX DISEASE
     Dosage: GENERIC
     Route: 065
     Dates: start: 20150329, end: 20150924
  36. NITROSTAT [Concomitant]
     Active Substance: NITROGLYCERIN

REACTIONS (1)
  - Gastric cancer stage IV [Fatal]
